FAERS Safety Report 6018435-2 (Version None)
Quarter: 2008Q4

REPORT INFORMATION
  Report Type: 
  Country: None (occurrence: None)
  Receive Date: 20081223
  Receipt Date: 20081211
  Transmission Date: 20090506
  Serious: Yes (Life-Threatening, Hospitalization)
  Sender: FDA-Public Use
  Company Number: JP-PFIZER INC-2008087099

PATIENT
  Sex: Male
  Weight: 64 kg

DRUGS (6)
  1. UNASYN [Suspect]
     Route: 042
     Dates: start: 20081014, end: 20081014
  2. CELESTONE [Concomitant]
  3. POTACOL-R [Concomitant]
     Route: 042
  4. MEVALOTIN [Concomitant]
     Dosage: UNK
     Route: 048
     Dates: start: 20050819
  5. OMEPRAL [Concomitant]
     Dosage: UNK
     Route: 048
     Dates: start: 20081004
  6. ZITHROMAX [Concomitant]
     Route: 048
     Dates: start: 20081011, end: 20081013

REACTIONS (1)
  - ANAPHYLACTIC SHOCK [None]
